FAERS Safety Report 4714233-8 (Version None)
Quarter: 2005Q2

REPORT INFORMATION
  Report Type: 
  Country: None (occurrence: None)
  Receive Date: 20050630
  Receipt Date: 20040804
  Transmission Date: 20051028
  Serious: Yes (Death)
  Sender: FDA-Public Use
  Company Number: 376857

PATIENT
  Age: 41 Year
  Sex: Female
  Weight: 90.7 kg

DRUGS (3)
  1. KLONOPIN [Suspect]
     Indication: ANXIETY
     Dosage: ORAL
     Route: 048
  2. KLONOPIN [Suspect]
     Indication: CONVULSION
     Dosage: ORAL
     Route: 048
  3. KLONOPIN [Suspect]
     Indication: CONVULSION
     Dosage: 1 PER PRN RECTAL
     Route: 054
     Dates: start: 20021106, end: 20021118

REACTIONS (2)
  - DEATH [None]
  - MEDICATION ERROR [None]
